FAERS Safety Report 4962158-5 (Version None)
Quarter: 2006Q2

REPORT INFORMATION
  Report Type: 
  Country: None (occurrence: None)
  Receive Date: 20060404
  Receipt Date: 20051205
  Transmission Date: 20061013
  Serious: Yes (Hospitalization)
  Sender: FDA-Public Use
  Company Number: US-MERCK-0512USA00818

PATIENT
  Age: 34 Year
  Sex: Male
  Weight: 91 kg

DRUGS (6)
  1. VIOXX [Suspect]
     Indication: ARTHRITIS
     Route: 048
     Dates: start: 20030912, end: 20031101
  2. INSULIN [Concomitant]
     Route: 065
  3. LORTAB [Concomitant]
     Route: 065
     Dates: start: 19940101, end: 20041201
  4. PERCOCET [Concomitant]
     Route: 065
     Dates: start: 19940101, end: 20041201
  5. OXYCONTIN [Concomitant]
     Route: 065
     Dates: start: 19940101, end: 20041201
  6. ENALAPRIL COMP [Concomitant]
     Route: 065

REACTIONS (5)
  - ARTHROPATHY [None]
  - CORONARY ARTERY DISEASE [None]
  - HYPERTENSION [None]
  - MYOCARDIAL INFARCTION [None]
  - SPINAL DISORDER [None]
